FAERS Safety Report 20751800 (Version 3)
Quarter: 2022Q2

REPORT INFORMATION
  Report Type: Spontaneous
  Country: US (occurrence: US)
  Receive Date: 20220426
  Receipt Date: 20220524
  Transmission Date: 20220721
  Serious: No
  Sender: FDA-Public Use
  Company Number: US-PFIZER INC-202200292389

PATIENT
  Age: 54 Year
  Sex: Female

DRUGS (2)
  1. XELJANZ XR [Suspect]
     Active Substance: TOFACITINIB CITRATE
     Indication: Psoriatic arthropathy
     Dosage: 11 MG, DAILY
     Route: 048
     Dates: start: 20211222
  2. XELJANZ XR [Suspect]
     Active Substance: TOFACITINIB CITRATE
     Dosage: UNK
     Dates: start: 20211220, end: 20220401

REACTIONS (7)
  - Constipation [Unknown]
  - Abdominal discomfort [Unknown]
  - Gastrointestinal disorder [Unknown]
  - Headache [Unknown]
  - Abdominal distension [Unknown]
  - Discomfort [Unknown]
  - Drug ineffective [Unknown]
